FAERS Safety Report 18347355 (Version 1)
Quarter: 2020Q4

REPORT INFORMATION
  Report Type: Other
  Country: US (occurrence: US)
  Receive Date: 20201006
  Receipt Date: 20201006
  Transmission Date: 20210114
  Serious: Yes (Other)
  Sender: FDA-Public Use
  Company Number: US-ROCHE-2624781

PATIENT
  Sex: Male

DRUGS (1)
  1. OCREVUS [Suspect]
     Active Substance: OCRELIZUMAB
     Indication: MULTIPLE SCLEROSIS
     Dosage: ON 18/OCT/2019, 20/SEP/2019, 03/DEC/2018, 01/JUN/2018, 01/DEC/2017,?05/JUN/2017, 18/OCT/2019, 02/MAY
     Route: 065

REACTIONS (3)
  - Subcutaneous abscess [Unknown]
  - Intentional product misuse [Unknown]
  - Off label use [Unknown]
